FAERS Safety Report 11141016 (Version 2)
Quarter: 2015Q2

REPORT INFORMATION
  Report Type: Spontaneous
  Country: FR (occurrence: FR)
  Receive Date: 20150527
  Receipt Date: 20150529
  Transmission Date: 20150821
  Serious: Yes (Hospitalization)
  Sender: FDA-Public Use
  Company Number: PHHY2015FR062461

PATIENT
  Age: 1 Year
  Sex: Female
  Weight: 10.8 kg

DRUGS (5)
  1. DEPAKINE [Suspect]
     Active Substance: VALPROATE SODIUM
     Indication: PARTIAL SEIZURES
     Dosage: (30 MG/KG), QD
     Route: 048
     Dates: start: 20150313, end: 20150316
  2. TEGRETOL [Suspect]
     Active Substance: CARBAMAZEPINE
     Indication: PARTIAL SEIZURES
     Dosage: 40 MG, QD
     Route: 048
     Dates: start: 20150209, end: 20150217
  3. CELESTENE [Suspect]
     Active Substance: BETAMETHASONE
     Indication: PRODUCT USED FOR UNKNOWN INDICATION
     Dosage: UNK
     Route: 048
     Dates: start: 20150310, end: 20150312
  4. TEGRETOL [Suspect]
     Active Substance: CARBAMAZEPINE
     Dosage: 80 MG, QD
     Route: 048
     Dates: start: 20150217, end: 20150312
  5. AMOXICILLIN. [Suspect]
     Active Substance: AMOXICILLIN
     Indication: PRODUCT USED FOR UNKNOWN INDICATION
     Dosage: UNK
     Route: 048
     Dates: start: 20150310, end: 20150312

REACTIONS (4)
  - Hepatocellular injury [Recovering/Resolving]
  - Skin exfoliation [Recovered/Resolved]
  - Generalised oedema [Recovered/Resolved]
  - Drug reaction with eosinophilia and systemic symptoms [Recovered/Resolved with Sequelae]

NARRATIVE: CASE EVENT DATE: 20150310
